FAERS Safety Report 10078157 (Version 1)
Quarter: 2014Q2

REPORT INFORMATION
  Report Type: Spontaneous
  Country: US (occurrence: US)
  Receive Date: 20140415
  Receipt Date: 20140415
  Transmission Date: 20141212
  Serious: No
  Sender: FDA-Public Use
  Company Number: US-BIOGENIDEC-2014BI012472

PATIENT
  Age: 62 Year
  Sex: Male

DRUGS (5)
  1. AVONEX [Suspect]
     Indication: MULTIPLE SCLEROSIS
     Route: 030
     Dates: start: 20030701, end: 20080430
  2. AVONEX [Suspect]
     Indication: MULTIPLE SCLEROSIS
     Route: 030
     Dates: start: 20140301
  3. TYSABRI [Concomitant]
     Indication: MULTIPLE SCLEROSIS
  4. TYSABRI [Concomitant]
     Indication: MULTIPLE SCLEROSIS
  5. TECFIDERA [Concomitant]
     Indication: MULTIPLE SCLEROSIS

REACTIONS (6)
  - General symptom [Unknown]
  - Abnormal dreams [Recovered/Resolved]
  - Malaise [Recovered/Resolved]
  - Influenza like illness [Recovered/Resolved]
  - Headache [Unknown]
  - Rash [Not Recovered/Not Resolved]
